FAERS Safety Report 4371580-X (Version None)
Quarter: 2004Q2

REPORT INFORMATION
  Report Type: 
  Country: None (occurrence: None)
  Receive Date: 20040602
  Receipt Date: 20040517
  Transmission Date: 20050107
  Serious: Yes (Hospitalization)
  Sender: FDA-Public Use
  Company Number: 191711

PATIENT
  Age: 40 Year
  Sex: Female

DRUGS (4)
  1. AVONEX [Suspect]
     Indication: MULTIPLE SCLEROSIS
  2. MULTI-VITAMINS [Concomitant]
  3. VITAMIN E [Concomitant]
  4. VITAMIN C [Concomitant]

REACTIONS (4)
  - DYSGRAPHIA [None]
  - ENDOMETRIOMA [None]
  - GRIP STRENGTH DECREASED [None]
  - OVARIAN CYST [None]
